FAERS Safety Report 5071852-X (Version None)
Quarter: 2006Q3

REPORT INFORMATION
  Report Type: 
  Country: None (occurrence: None)
  Receive Date: 20060801
  Receipt Date: 20060726
  Transmission Date: 20061208
  Serious: Yes (Hospitalization)
  Sender: FDA-Public Use
  Company Number: 200613198GDS

PATIENT
  Age: 62 Year
  Sex: Male

DRUGS (1)
  1. DACARBAZINE (DACARBAZINE CITRATE) [Suspect]
     Indication: MALIGNANT MELANOMA
     Dosage: 2380 MG, TOTAL DAILY, INTRAVENOUS
     Route: 042
     Dates: start: 20060630

REACTIONS (3)
  - HEADACHE [None]
  - PYREXIA [None]
  - VOMITING [None]
